FAERS Safety Report 9250931 (Version 1)
Quarter: 2013Q1

REPORT INFORMATION
  Report Type: Spontaneous
  Country: US (occurrence: None)
  Receive Date: 20130305
  Receipt Date: 20130305
  Transmission Date: 20140127
  Serious: Yes (Other)
  Sender: FDA-Public Use
  Company Number: 163-21880-12081674

PATIENT
  Age: 72 Year
  Sex: Male
  Weight: 65.77 kg

DRUGS (6)
  1. REVLIMID [Suspect]
     Indication: MYELODYSPLASTIC SYNDROME
     Dosage: 01/17/2012 - UNKNOWN, CAPSULE, 10 MG, 28 IN 28 D, PO
  2. ALLOPURINOL [Concomitant]
  3. PREDNISOLONE (PREDNISOLONE) [Concomitant]
  4. VITAMIN B12 (CYANOCOBALAMIN) [Concomitant]
  5. VITAMIN C [Concomitant]
  6. VITAMIN D3 (COLECALCIFEROL) [Concomitant]

REACTIONS (1)
  - Full blood count decreased [None]
